FAERS Safety Report 7417383-0 (Version None)
Quarter: 2011Q2

REPORT INFORMATION
  Report Type: 
  Country: None (occurrence: None)
  Receive Date: 20110412
  Receipt Date: 20110412
  Transmission Date: 20111010
  Serious: Yes (Disabling, Other)
  Sender: FDA-Public Use
  Company Number: None

PATIENT
  Age: 72 Year
  Sex: Female
  Weight: 58.9676 kg

DRUGS (2)
  1. LEVAQUIN [Suspect]
     Indication: DIVERTICULITIS
     Dosage: 750MG 1
     Dates: start: 20110225
  2. LEVAQUIN [Suspect]
     Indication: DIVERTICULITIS
     Dosage: 750MG 1
     Dates: start: 20110211

REACTIONS (9)
  - PAIN IN EXTREMITY [None]
  - ASTHENIA [None]
  - MUSCULOSKELETAL PAIN [None]
  - THINKING ABNORMAL [None]
  - NECK PAIN [None]
  - DIZZINESS [None]
  - NERVOUS SYSTEM DISORDER [None]
  - MEMORY IMPAIRMENT [None]
  - MUSCLE DISORDER [None]
